FAERS Safety Report 15661146 (Version 6)
Quarter: 2020Q1

REPORT INFORMATION
  Report Type: Report from Study
  Country: CO (occurrence: CO)
  Receive Date: 20181127
  Receipt Date: 20200226
  Transmission Date: 20200409
  Serious: Yes (Other)
  Sender: FDA-Public Use
  Company Number: CO-INCYTE CORPORATION-2018IN011927

PATIENT

DRUGS (4)
  1. ACETAMINOPHEN. [Concomitant]
     Active Substance: ACETAMINOPHEN
     Indication: PRODUCT USED FOR UNKNOWN INDICATION
     Dosage: UNK UNK, PRN
     Route: 065
  2. JAKAVI [Suspect]
     Active Substance: RUXOLITINIB
     Dosage: UNK
     Route: 065
  3. JAKAVI [Suspect]
     Active Substance: RUXOLITINIB
     Indication: MYELOFIBROSIS
     Dosage: 20 MG, BID (EVERY 12 HOURS)
     Route: 048
     Dates: start: 20130905
  4. HYDROXYUREA. [Suspect]
     Active Substance: HYDROXYUREA
     Indication: PRODUCT USED FOR UNKNOWN INDICATION
     Dosage: UNK
     Route: 065

REACTIONS (9)
  - Inflammation [Unknown]
  - Platelet count increased [Unknown]
  - Second primary malignancy [Unknown]
  - Breast cancer [Unknown]
  - White blood cell count decreased [Unknown]
  - Depressed mood [Unknown]
  - Pruritus [Unknown]
  - Decreased immune responsiveness [Unknown]
  - Malaise [Unknown]

NARRATIVE: CASE EVENT DATE: 202001
